FAERS Safety Report 19467339 (Version 1)
Quarter: 2021Q2

REPORT INFORMATION
  Report Type: Spontaneous
  Country: CA (occurrence: CA)
  Receive Date: 20210628
  Receipt Date: 20210628
  Transmission Date: 20210717
  Serious: Yes (Other)
  Sender: FDA-Public Use
  Company Number: CA-SAMSUNG BIOEPIS-SB-2021-15177

PATIENT
  Age: 44 Year
  Sex: Female
  Weight: 77 kg

DRUGS (5)
  1. SULFASALAZINE. [Concomitant]
     Active Substance: SULFASALAZINE
     Indication: PRODUCT USED FOR UNKNOWN INDICATION
     Route: 065
  2. INFLIXIMAB [Suspect]
     Active Substance: INFLIXIMAB
     Indication: ANKYLOSING SPONDYLITIS
     Route: 042
  3. CIMZIA [Concomitant]
     Active Substance: CERTOLIZUMAB PEGOL
     Indication: PRODUCT USED FOR UNKNOWN INDICATION
     Route: 065
  4. IRON [Concomitant]
     Active Substance: IRON
     Indication: IRON DEFICIENCY ANAEMIA
     Dosage: UNKNOWN
     Route: 048
  5. TYLENOL [Concomitant]
     Active Substance: ACETAMINOPHEN
     Indication: PRODUCT USED FOR UNKNOWN INDICATION
     Dosage: UNKNOWN
     Route: 065

REACTIONS (14)
  - Paraesthesia [Unknown]
  - Therapeutic product effect incomplete [Unknown]
  - Off label use [Unknown]
  - Product use issue [Unknown]
  - Condition aggravated [Unknown]
  - Iron deficiency anaemia [Unknown]
  - Dizziness [Unknown]
  - Ageusia [Unknown]
  - Intentional product use issue [Unknown]
  - Ankylosing spondylitis [Unknown]
  - Carpal tunnel syndrome [Unknown]
  - Hypoaesthesia [Unknown]
  - Mobility decreased [Unknown]
  - Sacroiliitis [Unknown]
